FAERS Safety Report 7497529-9 (Version None)
Quarter: 2011Q2

REPORT INFORMATION
  Report Type: 
  Country: None (occurrence: None)
  Receive Date: 20110523
  Receipt Date: 20110510
  Transmission Date: 20111010
  Serious: Yes (Other)
  Sender: FDA-Public Use
  Company Number: PHHY2011JP40184

PATIENT
  Sex: Female

DRUGS (5)
  1. MELEX [Concomitant]
     Dosage: 1.5 MG, UNK
     Route: 048
     Dates: start: 20110221, end: 20110427
  2. TOLEDOMIN [Concomitant]
     Dosage: 75 MG, UNK
     Route: 048
     Dates: start: 20110221, end: 20110427
  3. AFINITOR [Suspect]
     Indication: METASTATIC RENAL CELL CARCINOMA
     Dosage: 10 MG, DAILY
     Route: 048
     Dates: start: 20110221, end: 20110310
  4. LIMAS [Concomitant]
     Dosage: 300 MG, UNK
     Route: 048
     Dates: start: 20110221, end: 20110427
  5. SUNITINIB MALATE [Concomitant]
     Indication: METASTATIC RENAL CELL CARCINOMA
     Route: 048
     Dates: start: 20091120, end: 20110106

REACTIONS (3)
  - C-REACTIVE PROTEIN INCREASED [None]
  - NAUSEA [None]
  - DYSPHORIA [None]
